FAERS Safety Report 10359998 (Version 1)
Quarter: 2014Q3

REPORT INFORMATION
  Report Type: Spontaneous
  Country: FR (occurrence: None)
  Receive Date: 20140730
  Receipt Date: 20140730
  Transmission Date: 20150326
  Serious: Yes (Other)
  Sender: FDA-Public Use
  Company Number: 2014FR003457

PATIENT
  Age: 47 Year
  Sex: Female

DRUGS (2)
  1. CYTARABINE (CYTARABINE) [Suspect]
     Active Substance: CYTARABINE
     Indication: ACUTE MYELOID LEUKAEMIA
     Route: 042
     Dates: start: 20140416, end: 20140625
  2. PONATINIB (AP24534) TABLET [Suspect]
     Active Substance: PONATINIB
     Indication: ACUTE MYELOID LEUKAEMIA
     Route: 048
     Dates: start: 20140416, end: 20140625

REACTIONS (4)
  - Septic shock [None]
  - Hypertriglyceridaemia [None]
  - Serum ferritin increased [None]
  - Histiocytosis haematophagic [None]

NARRATIVE: CASE EVENT DATE: 20140625
